FAERS Safety Report 14587806 (Version 1)
Quarter: 2018Q1

REPORT INFORMATION
  Report Type: Spontaneous
  Country: GB (occurrence: CZ)
  Receive Date: 20180301
  Receipt Date: 20180301
  Transmission Date: 20180509
  Serious: Yes (Other)
  Sender: FDA-Public Use
  Company Number: GB-SA-2018SA053428

PATIENT
  Sex: Male

DRUGS (2)
  1. DOCETAXEL. [Suspect]
     Active Substance: DOCETAXEL
     Route: 058
  2. GOSERELIN [Concomitant]
     Active Substance: GOSERELIN
     Route: 058

REACTIONS (2)
  - Adverse event [Unknown]
  - Toxicity to various agents [Unknown]
